FAERS Safety Report 21936884 (Version 2)
Quarter: 2024Q4

REPORT INFORMATION
  Report Type: Spontaneous
  Country: ES (occurrence: ES)
  Receive Date: 20230201
  Receipt Date: 20241122
  Transmission Date: 20250115
  Serious: Yes (Life-Threatening, Hospitalization, Disabling)
  Sender: TEVA
  Company Number: None

PATIENT
  Age: 29 Year
  Sex: Male
  Weight: 80 kg

DRUGS (2)
  1. FINASTERIDE [Suspect]
     Active Substance: FINASTERIDE
     Indication: Alopecia
     Dosage: SPLIT INTO PIECES, FINASTERIDE TEVA 28 TABLETS
     Route: 048
     Dates: start: 20221107, end: 20221227
  2. FINASTERIDE [Suspect]
     Active Substance: FINASTERIDE
     Indication: Alopecia
     Dosage: 1MG EVERY TWO DAYS, FINASTERIDE CINFA EFG, 98 TABLETS
     Route: 048
     Dates: start: 20210201, end: 20221106

REACTIONS (4)
  - Penile size reduced [Unknown]
  - Erectile dysfunction [Unknown]
  - Suicidal ideation [Not Recovered/Not Resolved]
  - Mixed anxiety and depressive disorder [Not Recovered/Not Resolved]

NARRATIVE: CASE EVENT DATE: 20221221
